FAERS Safety Report 10067694 (Version 2)
Quarter: 2014Q2

REPORT INFORMATION
  Report Type: Spontaneous
  Country: US (occurrence: US)
  Receive Date: 20140409
  Receipt Date: 20140418
  Transmission Date: 20141212
  Serious: Yes (Hospitalization, Disabling, Other)
  Sender: FDA-Public Use
  Company Number: US-009507513-1404USA000512

PATIENT
  Sex: Female

DRUGS (1)
  1. NASONEX [Suspect]
     Indication: CHRONIC OBSTRUCTIVE PULMONARY DISEASE
     Dosage: UNK
     Route: 045
     Dates: start: 1990

REACTIONS (6)
  - Pneumonia [Recovered/Resolved]
  - Hip fracture [Recovered/Resolved]
  - Hip surgery [Recovered/Resolved]
  - Fall [Recovered/Resolved]
  - Visual acuity reduced [Recovered/Resolved]
  - Product quality issue [Unknown]
